FAERS Safety Report 20596749 (Version 1)
Quarter: 2022Q1

REPORT INFORMATION
  Report Type: Spontaneous
  Country: US (occurrence: None)
  Receive Date: 20220315
  Receipt Date: 20220315
  Transmission Date: 20220424
  Serious: Yes (Other)
  Sender: FDA-Public Use
  Company Number: None

PATIENT
  Age: 15 Year
  Sex: Female
  Weight: 68.95 kg

DRUGS (7)
  1. LAMOTRIGINE [Suspect]
     Active Substance: LAMOTRIGINE
     Indication: Bipolar I disorder
     Dosage: FREQUENCY : TWICE A DAY;?
     Route: 048
     Dates: start: 20180119, end: 20180330
  2. ABILIFY [Concomitant]
     Active Substance: ARIPIPRAZOLE
  3. SEROQUEL [Concomitant]
     Active Substance: QUETIAPINE FUMARATE
  4. INVEGA [Concomitant]
     Active Substance: PALIPERIDONE
  5. INTUNIV [Concomitant]
     Active Substance: GUANFACINE HYDROCHLORIDE
  6. METFORMIN [Concomitant]
     Active Substance: METFORMIN HYDROCHLORIDE
  7. LEVOMEFOLIC ACID [Concomitant]
     Active Substance: LEVOMEFOLIC ACID

REACTIONS (3)
  - Irritability [None]
  - Affective disorder [None]
  - Product substitution issue [None]

NARRATIVE: CASE EVENT DATE: 20180119
